FAERS Safety Report 14526421 (Version 7)
Quarter: 2018Q2

REPORT INFORMATION
  Report Type: Report from Study
  Country: FR (occurrence: FR)
  Receive Date: 20180213
  Receipt Date: 20180411
  Transmission Date: 20180711
  Serious: Yes (Other)
  Sender: FDA-Public Use
  Company Number: FR-PFIZER INC-2018056285

PATIENT
  Age: 3 Year
  Sex: Female

DRUGS (24)
  1. MORPHINE [Concomitant]
     Active Substance: MORPHINE
     Dosage: UNK
  2. OMEPRAZOLE. [Concomitant]
     Active Substance: OMEPRAZOLE
     Dosage: UNK
  3. COTRIMOXAZOLE [Concomitant]
     Active Substance: SULFAMETHOXAZOLE\TRIMETHOPRIM
     Dosage: UNK
  4. NALBUPHINE [Concomitant]
     Active Substance: NALBUPHINE
     Dosage: UNK
  5. TRIMEBUTINE [Concomitant]
     Active Substance: TRIMEBUTINE
     Indication: ABDOMINAL PAIN
     Dosage: UNK
  6. CEFTAZIDIME. [Concomitant]
     Active Substance: CEFTAZIDIME
     Dosage: UNK
  7. CIPROFLOXACIN. [Concomitant]
     Active Substance: CIPROFLOXACIN
     Indication: FEBRILE BONE MARROW APLASIA
     Dosage: UNK
  8. DOXORUBICIN HCL [Suspect]
     Active Substance: DOXORUBICIN HYDROCHLORIDE
     Indication: ACUTE LYMPHOCYTIC LEUKAEMIA
     Dosage: 15.5 MG, UNK
     Route: 042
     Dates: start: 20170410, end: 20170424
  9. ONCASPAR [Suspect]
     Active Substance: PEGASPARGASE
     Indication: ACUTE LYMPHOCYTIC LEUKAEMIA
     Dosage: 1550 IU, UNK
     Route: 042
     Dates: start: 20170413, end: 20170413
  10. MACROGOL [Concomitant]
     Active Substance: POLYETHYLENE GLYCOLS
     Dosage: UNK
  11. VINCRISTINE SULFATE. [Suspect]
     Active Substance: VINCRISTINE SULFATE
     Indication: ACUTE LYMPHOCYTIC LEUKAEMIA
     Dosage: 0.9 MG, UNK
     Route: 042
     Dates: start: 20170410, end: 20170424
  12. PARACETAMOL [Concomitant]
     Active Substance: ACETAMINOPHEN
     Dosage: UNK
  13. AMIKACIN. [Concomitant]
     Active Substance: AMIKACIN
     Dosage: UNK
  14. DEXAMETHASONE. [Suspect]
     Active Substance: DEXAMETHASONE
     Indication: ACUTE LYMPHOCYTIC LEUKAEMIA
     Dosage: 6 MG, UNK
     Route: 048
     Dates: start: 20170410, end: 20170424
  15. ACICLOVIR [Concomitant]
     Active Substance: ACYCLOVIR
     Dosage: UNK
  16. FUROSEMIDE. [Concomitant]
     Active Substance: FUROSEMIDE
     Dosage: UNK
  17. PEDIAVENT /00942701/ [Concomitant]
     Active Substance: ALBUTEROL\GUAIFENESIN
     Indication: MUCOSAL INFLAMMATION
     Dosage: UNK
  18. NEFOPAM [Concomitant]
     Active Substance: NEFOPAM
     Indication: MUCOSAL INFLAMMATION
     Dosage: UNK
  19. ACLOTINE [Concomitant]
     Active Substance: ANTITHROMBIN III HUMAN
     Dosage: UNK
  20. METHOTREXATE. [Suspect]
     Active Substance: METHOTREXATE
     Indication: ACUTE LYMPHOCYTIC LEUKAEMIA
     Dosage: UNK
     Route: 037
  21. VANCOMYCIN [Concomitant]
     Active Substance: VANCOMYCIN
     Dosage: UNK
  22. AMPHOTERICIN B. [Concomitant]
     Active Substance: AMPHOTERICIN B
     Dosage: UNK
  23. VIALEBEX [Concomitant]
     Active Substance: ALBUMIN HUMAN
     Dosage: UNK
  24. CLAIRYG [Concomitant]
     Active Substance: HUMAN IMMUNOGLOBULIN G
     Indication: HYPOGAMMAGLOBULINAEMIA
     Dosage: UNK

REACTIONS (1)
  - Hyperbilirubinaemia [Recovered/Resolved]

NARRATIVE: CASE EVENT DATE: 20170501
